FAERS Safety Report 25051635 (Version 3)
Quarter: 2025Q1

REPORT INFORMATION
  Report Type: Report from Study
  Country: CO (occurrence: CO)
  Receive Date: 20250307
  Receipt Date: 20250327
  Transmission Date: 20250408
  Serious: No
  Sender: NOVARTIS
  Company Number: CO-002147023-NVSC2025CO013244

PATIENT
  Sex: Female
  Weight: 80 kg

DRUGS (3)
  1. KISQALI [Suspect]
     Active Substance: RIBOCICLIB
     Indication: Hormone receptor positive HER2 negative breast cancer
     Route: 065
     Dates: start: 202409
  2. KISQALI [Suspect]
     Active Substance: RIBOCICLIB
     Dosage: 600 MG, QD
     Route: 048
     Dates: start: 20241008, end: 20241227
  3. FEMARA [Suspect]
     Active Substance: LETROZOLE
     Indication: Hormone receptor positive HER2 negative breast cancer
     Dosage: 2.5 MG, QD
     Route: 048
     Dates: start: 20240927

REACTIONS (4)
  - Oedema due to hepatic disease [Recovering/Resolving]
  - General physical health deterioration [Unknown]
  - Memory impairment [Unknown]
  - Product use issue [Unknown]
